FAERS Safety Report 6274317-2 (Version None)
Quarter: 2009Q3

REPORT INFORMATION
  Report Type: 
  Country: None (occurrence: None)
  Receive Date: 20090716
  Receipt Date: 20090706
  Transmission Date: 20100115
  Serious: Yes (Disabling, Other)
  Sender: FDA-Public Use
  Company Number: 2009-1484

PATIENT
  Age: 56 Year
  Sex: Male

DRUGS (15)
  1. DYSPORT [Suspect]
     Indication: CEREBROVASCULAR ACCIDENT
     Dosage: SEE IMAGE
     Route: 030
     Dates: start: 20090201, end: 20090201
  2. DYSPORT [Suspect]
     Indication: MUSCLE SPASTICITY
     Dosage: SEE IMAGE
     Route: 030
     Dates: start: 20090201, end: 20090201
  3. ALDACTONE [Concomitant]
  4. AMLODIPINE BESYLATE [Concomitant]
  5. VALSARTAN [Concomitant]
  6. MYOLASTAN (TETRAZRPAM) [Concomitant]
  7. ASPIRIN [Concomitant]
  8. LIORESAL [Concomitant]
  9. MEPRONIZINE (MEPRONIZINE) [Concomitant]
  10. FENOFIBRATE [Concomitant]
  11. ESCITALOPRAM [Concomitant]
  12. RIVOTRIL (CLONAZEPAM) [Concomitant]
  13. CARBOSYLANE (CARBOSYLANE) [Concomitant]
  14. SULFARLEM (ANETHOLE TRITHIONE) [Concomitant]
  15. BISOPROLOL FUMARATE [Concomitant]

REACTIONS (4)
  - DIPLOPIA [None]
  - DYSPHAGIA [None]
  - HYPOTONIA [None]
  - MUSCLE CONTRACTIONS INVOLUNTARY [None]
